FAERS Safety Report 19995671 (Version 1)
Quarter: 2021Q4

REPORT INFORMATION
  Report Type: Spontaneous
  Country: US (occurrence: US)
  Receive Date: 20211026
  Receipt Date: 20211026
  Transmission Date: 20220303
  Serious: Yes (Hospitalization)
  Sender: FDA-Public Use
  Company Number: None

PATIENT
  Age: 50 Year
  Sex: Female

DRUGS (11)
  1. REPATHA [Suspect]
     Active Substance: EVOLOCUMAB
     Indication: Hyperlipidaemia
     Dosage: ?          OTHER FREQUENCY:EVERY MONTH;
     Route: 058
     Dates: start: 20210811
  2. JARDIANCE [Concomitant]
     Active Substance: EMPAGLIFLOZIN
  3. Erythrom Eth [Concomitant]
  4. OZEMPIC [Concomitant]
     Active Substance: SEMAGLUTIDE
  5. Diclofenac ER [Concomitant]
  6. ONDANSETRON [Concomitant]
     Active Substance: ONDANSETRON
  7. HYOSCYAMINE [Concomitant]
     Active Substance: HYOSCYAMINE
  8. Tresiba Flex [Concomitant]
  9. CLONIDINE [Concomitant]
     Active Substance: CLONIDINE
  10. MELOXICAM [Concomitant]
     Active Substance: MELOXICAM
  11. HYDROCHLOROTHIAZIDE\LOSARTAN POTASSIUM [Concomitant]
     Active Substance: HYDROCHLOROTHIAZIDE\LOSARTAN POTASSIUM

REACTIONS (1)
  - Gastric disorder [None]

NARRATIVE: CASE EVENT DATE: 20211025
